FAERS Safety Report 8571848-7 (Version None)
Quarter: 2012Q3

REPORT INFORMATION
  Report Type: 
  Country: None (occurrence: None)
  Receive Date: 20120806
  Receipt Date: 20120720
  Transmission Date: 20120928
  Serious: Yes (Hospitalization, Disabling, Other)
  Sender: FDA-Public Use
  Company Number: US-009507513-2009-190526-NL

PATIENT

DRUGS (2)
  1. NUVARING [Suspect]
     Indication: MENSTRUAL CYCLE MANAGEMENT
     Dosage: DOSE TEXT: 3 WEEKS IN, 1 WEEK OUT, CONTINUING: NO
     Dates: start: 20061102, end: 20070201
  2. NUVARING [Suspect]
     Indication: DYSMENORRHOEA

REACTIONS (4)
  - PERIARTHRITIS [None]
  - CEREBROVASCULAR ACCIDENT [None]
  - ENCHONDROMA [None]
  - OFF LABEL USE [None]
